FAERS Safety Report 7428362-1 (Version None)
Quarter: 2011Q2

REPORT INFORMATION
  Report Type: 
  Country: None (occurrence: None)
  Receive Date: 20110418
  Receipt Date: 20110418
  Transmission Date: 20111010
  Serious: Yes (Life-Threatening, Hospitalization)
  Sender: FDA-Public Use
  Company Number: None

PATIENT
  Age: 84 Year
  Sex: Female
  Weight: 88 kg

DRUGS (8)
  1. MELOXICAM [Suspect]
     Indication: BACK PAIN
     Dates: start: 20110128, end: 20110130
  2. ASPIRIN [Concomitant]
  3. ADVAIR DISKUS 100/50 [Concomitant]
  4. ALBUTEROL [Concomitant]
  5. SINGULAIR [Concomitant]
  6. LIPITOR [Concomitant]
  7. MICARDIS [Concomitant]
  8. LEVOTHYROXINE SODIUM [Concomitant]

REACTIONS (3)
  - INCREASED TENDENCY TO BRUISE [None]
  - FAECES DISCOLOURED [None]
  - PLATELET COUNT DECREASED [None]
